FAERS Safety Report 9414839 (Version 1)
Quarter: 2013Q3

REPORT INFORMATION
  Report Type: Report from Study
  Country: CA (occurrence: CA)
  Receive Date: 20130723
  Receipt Date: 20130723
  Transmission Date: 20140515
  Serious: Yes (Hospitalization)
  Sender: FDA-Public Use
  Company Number: CA-ABBOTT-13P-028-1123199-00

PATIENT
  Age: 33 Year
  Sex: Female

DRUGS (2)
  1. HUMIRA [Suspect]
     Indication: CROHN^S DISEASE
     Route: 058
     Dates: start: 20130703
  2. APO-AZATHIOPRINE [Concomitant]
     Indication: CROHN^S DISEASE
     Dates: end: 20130713

REACTIONS (1)
  - Intestinal obstruction [Recovering/Resolving]
